FAERS Safety Report 7022921-6 (Version None)
Quarter: 2010Q3

REPORT INFORMATION
  Report Type: 
  Country: None (occurrence: None)
  Receive Date: 20100930
  Receipt Date: 20100921
  Transmission Date: 20110219
  Serious: Yes (Other)
  Sender: FDA-Public Use
  Company Number: US-PURDUE-USA-2010-0047308

PATIENT
  Sex: Male

DRUGS (1)
  1. OXYCONTIN [Suspect]
     Indication: PRODUCT USED FOR UNKNOWN INDICATION
     Dosage: 80 MG, Q6H

REACTIONS (4)
  - BLOOD PRESSURE INCREASED [None]
  - COLD SWEAT [None]
  - PANCREATITIS [None]
  - SOMNOLENCE [None]
